FAERS Safety Report 9671179 (Version 1)
Quarter: 2013Q4

REPORT INFORMATION
  Report Type: Spontaneous
  Country: GB (occurrence: GB)
  Receive Date: 20131106
  Receipt Date: 20131106
  Transmission Date: 20140711
  Serious: Yes (Hospitalization, Other)
  Sender: FDA-Public Use
  Company Number: GB-009507513-1311GBR000839

PATIENT
  Age: 86 Year
  Sex: Male

DRUGS (11)
  1. FUROSEMIDE [Suspect]
     Dosage: 20 MG, AS NECESSARY
     Route: 048
  2. FUROSEMIDE [Suspect]
     Dosage: 40 MG, 1/1 DAYS
     Route: 048
  3. CO-AMILORIDE [Suspect]
  4. PERINDOPRIL ERBUMINE [Suspect]
     Dosage: 8 MG, UNK
     Route: 048
     Dates: end: 20110414
  5. HYDROXOCOBALAMIN [Concomitant]
     Dosage: UNKNOWN
  6. WARFARIN SODIUM [Concomitant]
     Dosage: UNKNOWN
     Route: 048
  7. ACETAMINOPHEN (+) CODEINE PHOSPHATE [Concomitant]
     Dosage: UNKNOWN
  8. DIGOXIN [Concomitant]
     Dosage: 125 MICROGRAM, 1/1 DAYS
  9. FERROUS SULFATE [Concomitant]
     Dosage: 200 MG, 2/1 DAYS
  10. GOSERELIN [Concomitant]
     Dosage: UNKNOWN
  11. LANSOPRAZOLE [Concomitant]
     Dosage: 15 MG, 1/1 DAYS

REACTIONS (1)
  - Renal failure acute [Recovered/Resolved]
